FAERS Safety Report 9506160 (Version 1)
Quarter: 2013Q1

REPORT INFORMATION
  Report Type: Spontaneous
  Country: US (occurrence: None)
  Receive Date: 20130301
  Receipt Date: 20130301
  Transmission Date: 20140127
  Serious: Yes (Hospitalization)
  Sender: FDA-Public Use
  Company Number: RB-46052-2012

PATIENT
  Age: 24 Year
  Sex: Female

DRUGS (4)
  1. SUBOXONE [Suspect]
     Indication: DRUG DEPENDENCE
  2. BUPRENORPHINE [Suspect]
     Indication: DRUG DEPENDENCE
  3. XANAX [Suspect]
     Indication: PRODUCT USED FOR UNKNOWN INDICATION
  4. NICOTINE [Suspect]

REACTIONS (3)
  - Drug withdrawal syndrome [None]
  - Wrong technique in drug usage process [None]
  - Maternal exposure during pregnancy [None]
